FAERS Safety Report 9248909 (Version 1)
Quarter: 2013Q1

REPORT INFORMATION
  Report Type: Spontaneous
  Country: US (occurrence: None)
  Receive Date: 20130305
  Receipt Date: 20130305
  Transmission Date: 20140127
  Serious: Yes (Hospitalization)
  Sender: FDA-Public Use
  Company Number: 163-21880-12053100

PATIENT
  Age: 54 Year
  Sex: Female
  Weight: 79.38 kg

DRUGS (18)
  1. REVLIMID [Suspect]
     Indication: PLASMA CELL MYELOMA
     Dosage: 15 MG, 21 IN 28 D, PO
     Route: 048
     Dates: start: 20120325, end: 20120423
  2. ACYCLOVIR (ACICLOVIR) (ACICLOVIR) [Concomitant]
  3. CIPRO (CIPROFLOXACIN) [Concomitant]
  4. DECADRON (DEXAMETHASONE) [Concomitant]
  5. DICYCLOMINE (DICYCLOVERINE HYDROCHLORIDE) [Concomitant]
  6. DURAGESIC (FENTANYL) [Concomitant]
  7. ENALAPRIL [Concomitant]
  8. VICODIN (VICODIN) [Concomitant]
  9. HYDROCORTISONE (HYDROCORTISONE) (CREAM) [Concomitant]
  10. LORAZEPAM (LORAZEPAM) [Concomitant]
  11. NYSTATIN (NYSTATIN) [Concomitant]
  12. ONDANSETRON (ONDANSETRON) [Concomitant]
  13. K CLORIDE (POTASSIUM CHLORIDE) [Concomitant]
  14. COMPAZINE (PROCHLORPERAZINE EDISYLATE) [Concomitant]
  15. RESTORIL (TEMAZEPAM) [Concomitant]
  16. MVI (MVI) [Concomitant]
  17. B12 (CYANOCOBALAMIN) [Concomitant]
  18. PERCOCET (OXYCOCET) [Concomitant]

REACTIONS (3)
  - Nausea [None]
  - Vomiting [None]
  - Diarrhoea [None]
